FAERS Safety Report 8955324 (Version 1)
Quarter: 2012Q4

REPORT INFORMATION
  Report Type: 
  Country: US (occurrence: US)
  Receive Date: 20121210
  Receipt Date: 20121210
  Transmission Date: 20130627
  Serious: No
  Sender: FDA-Public Use
  Company Number: US-PFIZER INC-2012306749

PATIENT
  Sex: Male

DRUGS (6)
  1. CELEBREX [Suspect]
     Dosage: UNK
  2. LIPITOR [Interacting]
     Dosage: UNK
  3. PROTONIX [Interacting]
     Dosage: UNK
  4. WARFARIN [Interacting]
     Dosage: UNK
  5. CARDIZEM [Interacting]
     Dosage: UNK
  6. SINGULAIR [Interacting]
     Dosage: UNK

REACTIONS (2)
  - Drug interaction [Unknown]
  - Pain [Unknown]
